FAERS Safety Report 8177026-8 (Version None)
Quarter: 2012Q1

REPORT INFORMATION
  Report Type: 
  Country: None (occurrence: None)
  Receive Date: 20120124
  Receipt Date: 20111130
  Transmission Date: 20120608
  Serious: No
  Sender: FDA-Public Use
  Company Number: US-007015

PATIENT
  Age: 67 Year
  Sex: Male
  Weight: 84 kg

DRUGS (4)
  1. DEGARELIX (240 MG, 80 MG) [Suspect]
     Indication: PROSTATE CANCER
     Dosage: (240 MG 1X SUBCUTANEOUS) ; (80 MG 1X/MONTH SUBCUTANEOUS)
     Route: 058
     Dates: start: 20111001
  2. DEGARELIX (240 MG, 80 MG) [Suspect]
     Indication: PROSTATE CANCER
     Dosage: (240 MG 1X SUBCUTANEOUS) ; (80 MG 1X/MONTH SUBCUTANEOUS)
     Route: 058
     Dates: start: 20110901
  3. ACCOMIN MULTIVITAMIN [Concomitant]
  4. FLEXERIL [Concomitant]

REACTIONS (1)
  - HOT FLUSH [None]
